FAERS Safety Report 26102079 (Version 2)
Quarter: 2025Q4

REPORT INFORMATION
  Report Type: Spontaneous
  Country: US (occurrence: US)
  Receive Date: 20251128
  Receipt Date: 20251212
  Transmission Date: 20260118
  Serious: Yes (Other)
  Sender: GC Biopharma
  Company Number: US-GC BIOPHARMA-US-2025-GCBP-00042

PATIENT
  Age: 80 Year
  Sex: Female
  Weight: 63.9 kg

DRUGS (5)
  1. ALYGLO [Suspect]
     Active Substance: HUMAN IMMUNOGLOBULIN G-STWK
     Indication: Immunodeficiency common variable
     Dosage: 30 GRAM, 4W
     Route: 042
     Dates: start: 20251111, end: 20251111
  2. ALYGLO [Suspect]
     Active Substance: HUMAN IMMUNOGLOBULIN G-STWK
     Dosage: UNK
     Route: 042
  3. LORATADINE [Concomitant]
     Active Substance: LORATADINE
     Indication: Premedication
     Dosage: 10 MILLIGRAM
     Route: 048
  4. LORATADINE [Concomitant]
     Active Substance: LORATADINE
     Dosage: 20 MILLIGRAM, BID,  MORNING AND EVENING OF INFUSION
     Route: 048
     Dates: start: 20251110, end: 20251111
  5. ACETAMINOPHEN [Concomitant]
     Active Substance: ACETAMINOPHEN
     Indication: Premedication
     Dosage: 650 MILLIGRAM
     Route: 048

REACTIONS (1)
  - Urticaria [Recovered/Resolved]

NARRATIVE: CASE EVENT DATE: 20251111
